FAERS Safety Report 15471570 (Version 1)
Quarter: 2018Q4

REPORT INFORMATION
  Report Type: Spontaneous
  Country: US (occurrence: US)
  Receive Date: 20181007
  Receipt Date: 20181007
  Transmission Date: 20190205
  Serious: No
  Sender: FDA-Public Use
  Company Number: US-ASTRAZENECA-2018SF17707

PATIENT
  Age: 28299 Day
  Sex: Male
  Weight: 97.5 kg

DRUGS (4)
  1. BEVESPI AEROSPHERE [Suspect]
     Active Substance: FORMOTEROL FUMARATE\GLYCOPYRROLATE
     Indication: DYSPNOEA
     Dosage: 2 PUFFS IN THE MORNING AND 2 PUFFS IN THE EVENING
     Route: 055
     Dates: start: 20180908, end: 20180913
  2. BEVESPI AEROSPHERE [Suspect]
     Active Substance: FORMOTEROL FUMARATE\GLYCOPYRROLATE
     Indication: CHRONIC OBSTRUCTIVE PULMONARY DISEASE
     Dosage: 2 PUFFS IN THE MORNING AND 2 PUFFS IN THE EVENING
     Route: 055
     Dates: start: 20180908, end: 20180913
  3. AMIODARONE [Concomitant]
     Active Substance: AMIODARONE
     Indication: HEART RATE ABNORMAL
     Route: 065
     Dates: start: 20180901
  4. AMIODARONE [Concomitant]
     Active Substance: AMIODARONE
     Indication: ATRIAL FIBRILLATION
     Route: 065
     Dates: start: 20180901

REACTIONS (6)
  - Cough [Recovered/Resolved]
  - Pulmonary congestion [Not Recovered/Not Resolved]
  - Dyspnoea [Recovered/Resolved]
  - Sputum increased [Recovered/Resolved]
  - Throat irritation [Not Recovered/Not Resolved]
  - Upper respiratory tract congestion [Not Recovered/Not Resolved]

NARRATIVE: CASE EVENT DATE: 20180908
